FAERS Safety Report 13824020 (Version 3)
Quarter: 2018Q1

REPORT INFORMATION
  Report Type: Spontaneous
  Country: DE (occurrence: DE)
  Receive Date: 20170802
  Receipt Date: 20180307
  Transmission Date: 20180508
  Serious: Yes (Hospitalization, Other)
  Sender: FDA-Public Use
  Company Number: DE-BIOGEN-2017BI00426008

PATIENT
  Age: 48 Year
  Sex: Male

DRUGS (3)
  1. DULOXALTA [Concomitant]
     Indication: PRODUCT USED FOR UNKNOWN INDICATION
     Route: 065
  2. ZINBRYTA [Suspect]
     Active Substance: DACLIZUMAB
     Indication: RELAPSING-REMITTING MULTIPLE SCLEROSIS
     Route: 058
     Dates: start: 20170202, end: 20170520
  3. BACLOFEN. [Concomitant]
     Active Substance: BACLOFEN
     Indication: PRODUCT USED FOR UNKNOWN INDICATION
     Route: 065

REACTIONS (6)
  - General symptom [Unknown]
  - Nasopharyngitis [Unknown]
  - Cholelithiasis [Unknown]
  - Drug-induced liver injury [Recovered/Resolved]
  - Hepatitis E [Unknown]
  - Spinal pain [Unknown]

NARRATIVE: CASE EVENT DATE: 201705
